FAERS Safety Report 6920194-3 (Version None)
Quarter: 2010Q3

REPORT INFORMATION
  Report Type: 
  Country: None (occurrence: None)
  Receive Date: 20100809
  Receipt Date: 20100802
  Transmission Date: 20110219
  Serious: Yes (Hospitalization)
  Sender: FDA-Public Use
  Company Number: 2010SP026714

PATIENT
  Age: 77 Year
  Sex: Female
  Weight: 42.6 kg

DRUGS (1)
  1. PEGINTERFERON ALFA-2B (PEGINTERFERON ALFA-2B  /01543001/) [Suspect]
     Indication: HEPATITIS C
     Dosage: 0.1 ML;QW;SC
     Route: 058
     Dates: start: 20080118, end: 20100503

REACTIONS (2)
  - ATELECTASIS [None]
  - BRONCHIECTASIS [None]
